FAERS Safety Report 4845127-5 (Version None)
Quarter: 2005Q4

REPORT INFORMATION
  Report Type: 
  Country: None (occurrence: None)
  Receive Date: 20051125
  Receipt Date: 20051115
  Transmission Date: 20060501
  Serious: Yes (Disabling, Other)
  Sender: FDA-Public Use
  Company Number: 2005138765

PATIENT
  Sex: Female
  Weight: 61.2356 kg

DRUGS (5)
  1. DILANTIN KAPSEAL [Suspect]
     Indication: EPILEPSY
     Dosage: 400 MG (200 MG, 2 IN 1 D) ORAL
     Route: 048
  2. PHENYTOIN [Suspect]
     Indication: EPILEPSY
     Dates: start: 20050101
  3. LAMICTAL [Concomitant]
  4. TEGRETOL (CARBAMEZEPINE) [Concomitant]
  5. KLONOPIN [Concomitant]

REACTIONS (5)
  - AGGRESSION [None]
  - BRAIN DAMAGE [None]
  - COMPLEX PARTIAL SEIZURES [None]
  - LIBIDO DECREASED [None]
  - THERAPY NON-RESPONDER [None]
